FAERS Safety Report 14730603 (Version 1)
Quarter: 2018Q2

REPORT INFORMATION
  Report Type: Spontaneous
  Country: US (occurrence: US)
  Receive Date: 20180402
  Receipt Date: 20180402
  Transmission Date: 20180711
  Serious: No
  Sender: FDA-Public Use
  Company Number: None

PATIENT
  Age: 30 Year
  Sex: Female
  Weight: 63.5 kg

DRUGS (1)
  1. PARAGARD T 380A [Suspect]
     Active Substance: COPPER
     Dates: start: 20160201, end: 20180330

REACTIONS (7)
  - Embedded device [None]
  - Abdominal pain [None]
  - Device breakage [None]
  - Alopecia [None]
  - Vaginal discharge [None]
  - Device dislocation [None]
  - Muscle spasms [None]

NARRATIVE: CASE EVENT DATE: 20180330
